FAERS Safety Report 22123064 (Version 6)
Quarter: 2024Q4

REPORT INFORMATION
  Report Type: Report from Study
  Country: BR (occurrence: BR)
  Receive Date: 20230322
  Receipt Date: 20241128
  Transmission Date: 20250115
  Serious: No
  Sender: CELLTRION
  Company Number: BR-CELLTRION INC.-2023BR005891

PATIENT

DRUGS (18)
  1. INFLIXIMAB-DYYB [Suspect]
     Active Substance: INFLIXIMAB-DYYB
     Indication: Crohn^s disease
     Dosage: 3 AMPOULES EVERY 8 WEEKS
     Route: 042
     Dates: start: 20230303
  2. INFLIXIMAB-DYYB [Suspect]
     Active Substance: INFLIXIMAB-DYYB
     Dosage: 2 AMPOULES EVERY MONTH
     Route: 042
     Dates: start: 20230303
  3. INFLIXIMAB-DYYB [Suspect]
     Active Substance: INFLIXIMAB-DYYB
     Dosage: 3 AMPOULES EVERY 2 MONTHS
     Route: 042
     Dates: start: 20231108
  4. AZATHIOPRINE [Concomitant]
     Active Substance: AZATHIOPRINE
     Indication: Crohn^s disease
     Dosage: 3 PILLS A DAY (START: 30 YEARS AGO)
     Route: 048
  5. AZATHIOPRINE [Concomitant]
     Active Substance: AZATHIOPRINE
     Dosage: UNK
     Route: 048
  6. RALOXIFENE [Concomitant]
     Active Substance: RALOXIFENE
     Indication: Osteoporosis
     Dosage: 1 PILL A DAY (START: 30 YEARS AGO) / START: 20 YEARS
     Route: 048
  7. RALOXIFENE [Concomitant]
     Active Substance: RALOXIFENE
     Dosage: 1 PILL A DAY (START: 20 YEARS)
     Route: 048
  8. FLUOXETINE [Concomitant]
     Active Substance: FLUOXETINE HYDROCHLORIDE
     Indication: Depression
     Dosage: 2 PILLS A DAY
     Route: 048
  9. COLLAGEN [Concomitant]
     Active Substance: COLLAGEN
     Indication: Supplementation therapy
     Dosage: 1 PILL A DAY (START: 4 YEARS AGO)
     Route: 048
  10. COLLAGEN [Concomitant]
     Active Substance: COLLAGEN
     Indication: Arthralgia
  11. TRAMADOL [Concomitant]
     Active Substance: TRAMADOL
     Dosage: UNK
     Route: 048
  12. CALCIUM [Concomitant]
     Active Substance: CALCIUM
     Dosage: UNK
     Route: 048
  13. BUPROPION [Concomitant]
     Active Substance: BUPROPION
     Dosage: UNK
     Route: 048
  14. RIVOTRIL [Concomitant]
     Active Substance: CLONAZEPAM
     Dosage: 5 DROPS A DAY
     Route: 048
  15. DULOXETINE [Concomitant]
     Active Substance: DULOXETINE
     Indication: Crohn^s disease
     Dosage: 2 PILLS A DAY (START: 4 YEARS AGO)
     Route: 048
  16. FISH OIL [Concomitant]
     Active Substance: FISH OIL
     Indication: Supplementation therapy
     Dosage: 1 DRAGE A DAY (START: 4 YEARS AGO)
     Route: 048
  17. COVID-19 VACCINE [Concomitant]
     Dosage: COVID VACCINE BOOSTER
     Dates: start: 20231218
  18. ALPRAZOLAM [Concomitant]
     Active Substance: ALPRAZOLAM
     Indication: Pain
     Dosage: 0.25 MG

REACTIONS (7)
  - Weight increased [Recovered/Resolved]
  - Restless legs syndrome [Unknown]
  - Pain in extremity [Unknown]
  - Influenza [Recovered/Resolved]
  - Memory impairment [Recovered/Resolved]
  - Intentional dose omission [Unknown]
  - Intentional product use issue [Unknown]
